FAERS Safety Report 15942727 (Version 3)
Quarter: 2019Q2

REPORT INFORMATION
  Report Type: Spontaneous
  Country: US (occurrence: US)
  Receive Date: 20190209
  Receipt Date: 20190424
  Transmission Date: 20190711
  Serious: Yes (Other)
  Sender: FDA-Public Use
  Company Number: US-ASTRAZENECA-2018SF22040

PATIENT
  Age: 24332 Day
  Sex: Male
  Weight: 84.8 kg

DRUGS (15)
  1. DEXILANT [Suspect]
     Active Substance: DEXLANSOPRAZOLE
     Route: 065
     Dates: start: 20070521, end: 20070816
  2. TEMAZEPAM. [Concomitant]
     Active Substance: TEMAZEPAM
     Route: 048
  3. TERAZOSIN [Concomitant]
     Active Substance: TERAZOSIN\TERAZOSIN HYDROCHLORIDE
     Dates: start: 20070305
  4. VERAMYST [Concomitant]
     Active Substance: FLUTICASONE FUROATE
  5. SKELAXIN [Concomitant]
     Active Substance: METAXALONE
     Dates: start: 20070329
  6. NEXIUM [Suspect]
     Active Substance: ESOMEPRAZOLE MAGNESIUM
     Indication: GASTROOESOPHAGEAL REFLUX DISEASE
     Route: 048
     Dates: start: 20070521
  7. OMEPRAZOLE. [Concomitant]
     Active Substance: OMEPRAZOLE
     Route: 048
  8. PRILOSEC [Suspect]
     Active Substance: OMEPRAZOLE MAGNESIUM
     Indication: GASTROOESOPHAGEAL REFLUX DISEASE
     Route: 065
  9. LISINOPRIL/HCTZ [Concomitant]
     Active Substance: HYDROCHLOROTHIAZIDE\LISINOPRIL
     Dosage: 20-25 MG
     Dates: start: 20070305
  10. AMITIZA [Concomitant]
     Active Substance: LUBIPROSTONE
     Dates: start: 20071025
  11. MIRTAZAPINE. [Concomitant]
     Active Substance: MIRTAZAPINE
     Dates: start: 20081230
  12. NEXIUM [Suspect]
     Active Substance: ESOMEPRAZOLE MAGNESIUM
     Indication: GASTROOESOPHAGEAL REFLUX DISEASE
     Route: 048
     Dates: start: 20070521, end: 20070816
  13. TRAMADOL. [Concomitant]
     Active Substance: TRAMADOL
     Route: 048
  14. ZELNORM [Concomitant]
     Active Substance: TEGASEROD MALEATE
     Dates: start: 20070305
  15. LYRICA [Concomitant]
     Active Substance: PREGABALIN
     Dates: start: 20070626

REACTIONS (2)
  - Chronic kidney disease [Not Recovered/Not Resolved]
  - Renal failure [Unknown]

NARRATIVE: CASE EVENT DATE: 20150707
